FAERS Safety Report 4454561-7 (Version None)
Quarter: 2004Q3

REPORT INFORMATION
  Report Type: 
  Country: None (occurrence: None)
  Receive Date: 20040920
  Receipt Date: 20040920
  Transmission Date: 20050211
  Serious: Yes (Other)
  Sender: FDA-Public Use
  Company Number: None

PATIENT
  Sex: Female
  Weight: 113.3993 kg

DRUGS (20)
  1. LEVOTHYROXINE SODIUM [Suspect]
     Indication: HYPOTHYROIDISM
     Dosage: 100 MCG PO
     Route: 048
     Dates: start: 20040810
  2. ZANTAC [Concomitant]
  3. SYNTHROID [Concomitant]
  4. BEXTRA [Concomitant]
  5. PLAQUENIL [Concomitant]
  6. OXYCONTIN [Concomitant]
  7. OXYCODONE HCL [Concomitant]
  8. EFFEXOR [Concomitant]
  9. VERAPAMIL [Concomitant]
  10. KLONOPIN [Concomitant]
  11. TRAZODONE HCL [Concomitant]
  12. METFORMIN HCL [Concomitant]
  13. HUMALOG [Concomitant]
  14. ALLEGRA [Concomitant]
  15. SINGULAIR [Concomitant]
  16. ADVAIR DISKUS 100/50 [Concomitant]
  17. PREMARIN [Concomitant]
  18. VITAMIN C [Concomitant]
  19. VITAMIN E [Concomitant]
  20. GLUCOSAMINE CHONDROITIN [Concomitant]

REACTIONS (2)
  - PHARMACEUTICAL PRODUCT COMPLAINT [None]
  - RASH [None]
